FAERS Safety Report 21077120 (Version 1)
Quarter: 2022Q3

REPORT INFORMATION
  Report Type: Spontaneous
  Country: SE (occurrence: SE)
  Receive Date: 20220713
  Receipt Date: 20220713
  Transmission Date: 20221027
  Serious: Yes (Other)
  Sender: FDA-Public Use
  Company Number: None

PATIENT
  Age: 5 Year
  Sex: Male

DRUGS (3)
  1. MEROPENEM [Suspect]
     Active Substance: MEROPENEM
     Indication: Meningitis
     Dosage: 2100 MG, 1X/DAY
     Route: 042
     Dates: start: 20220302, end: 20220320
  2. ACETAMINOPHEN [Concomitant]
     Active Substance: ACETAMINOPHEN
     Dosage: 250 MG, AS NEEDED (250 MG 1 IF NEEDED)
     Route: 048
     Dates: start: 20220302, end: 20220325
  3. NUROFEN ORANGE [Concomitant]
     Dosage: UNK (40 MG / ML 4.5 ML IF NEEDED)
     Route: 048
     Dates: start: 20220304, end: 20220325

REACTIONS (8)
  - Anaemia [Recovered/Resolved]
  - Neutropenia [Recovered/Resolved]
  - Pruritus [Recovered/Resolved]
  - Abdominal pain [Recovered/Resolved]
  - Pain in extremity [Recovered/Resolved]
  - Leukopenia [Recovered/Resolved]
  - Transaminases increased [Recovered/Resolved]
  - Off label use [Unknown]

NARRATIVE: CASE EVENT DATE: 20220302
